FAERS Safety Report 19042398 (Version 2)
Quarter: 2021Q2

REPORT INFORMATION
  Report Type: Other
  Country: US (occurrence: US)
  Receive Date: 20210323
  Receipt Date: 20210420
  Transmission Date: 20210717
  Serious: Yes (Disabling)
  Sender: FDA-Public Use
  Company Number: US-ROCHE-2414351

PATIENT
  Age: 53 Year
  Sex: Female
  Weight: 61.29 kg

DRUGS (9)
  1. TURMERIC [Concomitant]
     Active Substance: HERBALS\TURMERIC
  2. BACLOFEN. [Concomitant]
     Active Substance: BACLOFEN
     Route: 048
  3. OCREVUS [Suspect]
     Active Substance: OCRELIZUMAB
     Indication: PRIMARY PROGRESSIVE MULTIPLE SCLEROSIS
     Dosage: 300 MG DAY 1 AND DAY 15 LATER 600 MG EVERY 6 MONTHS.?DATE OF TREATMENT: 14/MAR/2019, 13/AUG/2018
     Route: 042
     Dates: start: 20180730
  4. DALFAMPRIDINE. [Suspect]
     Active Substance: DALFAMPRIDINE
     Indication: PRODUCT USED FOR UNKNOWN INDICATION
     Route: 048
  5. MEDICAL MARIJUANA [Concomitant]
     Active Substance: CANNABIS SATIVA SUBSP. INDICA TOP
     Indication: MUSCLE SPASTICITY
     Dosage: AT NIGHT THC IS HIGHER
     Route: 060
     Dates: start: 202102
  6. OCREVUS [Suspect]
     Active Substance: OCRELIZUMAB
     Dosage: DATE OF TREATMENT (08/SEP/2020, 10/MAR/2020)
     Route: 042
     Dates: start: 20190912
  7. MEDICAL MARIJUANA [Concomitant]
     Active Substance: CANNABIS SATIVA SUBSP. INDICA TOP
     Indication: MULTIPLE SCLEROSIS
     Dosage: 4:1 CBD TO THC RATIO AT 8AM AND NOON
     Route: 060
     Dates: start: 202102
  8. FISH OIL [Concomitant]
     Active Substance: FISH OIL
  9. ZANAFLEX [Concomitant]
     Active Substance: TIZANIDINE HYDROCHLORIDE

REACTIONS (5)
  - Dizziness [Recovered/Resolved]
  - Blood pressure decreased [Recovered/Resolved]
  - Gait disturbance [Not Recovered/Not Resolved]
  - Off label use [Unknown]
  - Peroneal nerve palsy [Not Recovered/Not Resolved]

NARRATIVE: CASE EVENT DATE: 20180730
